FAERS Safety Report 11689065 (Version 1)
Quarter: 2015Q4

REPORT INFORMATION
  Report Type: Report from Study
  Country: CA (occurrence: CA)
  Receive Date: 20151102
  Receipt Date: 20151102
  Transmission Date: 20160304
  Serious: Yes (Hospitalization, Other)
  Sender: FDA-Public Use
  Company Number: CA-ABBVIE-15K-028-1488030-00

PATIENT
  Sex: Male

DRUGS (1)
  1. HUMIRA [Suspect]
     Active Substance: ADALIMUMAB
     Indication: CROHN^S DISEASE
     Route: 058
     Dates: start: 20140912, end: 201505

REACTIONS (11)
  - Intestinal obstruction [Unknown]
  - Anxiety [Unknown]
  - Crohn^s disease [Unknown]
  - Fatigue [Unknown]
  - Suicidal ideation [Unknown]
  - Lower gastrointestinal haemorrhage [Unknown]
  - Infection [Unknown]
  - Nausea [Unknown]
  - Mobility decreased [Unknown]
  - Malaise [Unknown]
  - Mood altered [Unknown]

NARRATIVE: CASE EVENT DATE: 2015
